FAERS Safety Report 15307106 (Version 1)
Quarter: 2018Q3

REPORT INFORMATION
  Report Type: Spontaneous
  Country: FR (occurrence: FR)
  Receive Date: 20180822
  Receipt Date: 20180822
  Transmission Date: 20181010
  Serious: Yes (Life-Threatening)
  Sender: FDA-Public Use
  Company Number: FR-PFIZER INC-2018331779

PATIENT
  Age: 58 Year
  Sex: Male
  Weight: 68 kg

DRUGS (9)
  1. CISATRACURIUM BESILATE [Suspect]
     Active Substance: CISATRACURIUM BESYLATE
     Indication: ANAESTHESIA
     Dosage: 1 DF, UNK
     Route: 042
     Dates: start: 20180516, end: 20180516
  2. ATORVASTATIN CALCIUM. [Suspect]
     Active Substance: ATORVASTATIN CALCIUM
     Indication: PROPHYLAXIS
     Dosage: 20 MG, 1X/DAY
     Route: 048
     Dates: end: 20180525
  3. EPHEDRINE. [Concomitant]
     Active Substance: EPHEDRINE
     Dosage: 6 MG, UNK
     Route: 042
     Dates: start: 20180516, end: 20180516
  4. KETAMINE [Concomitant]
     Active Substance: KETAMINE
     Dosage: 20 MG, UNK
     Route: 042
     Dates: start: 20180516, end: 20180516
  5. DEXAMETHASONE. [Concomitant]
     Active Substance: DEXAMETHASONE
     Dosage: 4 MG, UNK
     Route: 042
     Dates: start: 20180516, end: 20180516
  6. LANZOR [Concomitant]
     Active Substance: LANSOPRAZOLE
     Dosage: 1 DF, 1X/DAY
     Route: 048
  7. KARDEGIC [Concomitant]
     Active Substance: ASPIRIN DL-LYSINE
     Dosage: 1 DF, 1X/DAY
     Route: 048
  8. PROPOFOL. [Suspect]
     Active Substance: PROPOFOL
     Indication: ANAESTHESIA
     Dosage: 1 DF, UNK
     Route: 042
     Dates: start: 20180516, end: 20180516
  9. BISOPROLOL FUMARATE. [Concomitant]
     Active Substance: BISOPROLOL FUMARATE
     Dosage: 5 MG, 1X/DAY
     Route: 048

REACTIONS (2)
  - Myopathy [Recovering/Resolving]
  - Rhabdomyolysis [Recovering/Resolving]

NARRATIVE: CASE EVENT DATE: 20180519
